FAERS Safety Report 10216570 (Version 1)
Quarter: 2014Q2

REPORT INFORMATION
  Report Type: Spontaneous
  Country: US (occurrence: US)
  Receive Date: 20140604
  Receipt Date: 20140604
  Transmission Date: 20141212
  Serious: Yes (Other)
  Sender: FDA-Public Use
  Company Number: US-BAYER-2014-081178

PATIENT
  Age: 21 Year
  Sex: Female

DRUGS (1)
  1. MIRENA [Suspect]
     Indication: CONTRACEPTION
     Dosage: 20 ?G, CONT
     Route: 015
     Dates: start: 20120327, end: 20120618

REACTIONS (10)
  - Uterine perforation [None]
  - Vaginal haemorrhage [None]
  - Medical device complication [None]
  - Emotional distress [None]
  - Pelvic pain [None]
  - Abdominal pain lower [None]
  - Nausea [None]
  - Dysmenorrhoea [None]
  - Abdominal pain [None]
  - Injury [None]
